FAERS Safety Report 13818196 (Version 1)
Quarter: 2017Q3

REPORT INFORMATION
  Report Type: Spontaneous
  Country: US (occurrence: US)
  Receive Date: 20170731
  Receipt Date: 20170731
  Transmission Date: 20171127
  Serious: No
  Sender: FDA-Public Use
  Company Number: US-ROCHE-656610

PATIENT
  Age: 68 Year
  Sex: Female

DRUGS (1)
  1. BONIVA [Suspect]
     Active Substance: IBANDRONATE SODIUM
     Indication: OSTEOPOROSIS
     Dosage: STRENGTH: 3 MG/ML, FORM: PRE-FILLED SYRINGE, DOSE: 3 MG/ML
     Route: 042

REACTIONS (1)
  - Pain [Unknown]

NARRATIVE: CASE EVENT DATE: 20090908
